FAERS Safety Report 21053116 (Version 1)
Quarter: 2022Q3

REPORT INFORMATION
  Report Type: Report from Study
  Country: DE (occurrence: DE)
  Receive Date: 20220707
  Receipt Date: 20220707
  Transmission Date: 20221026
  Serious: Yes (Other)
  Sender: FDA-Public Use
  Company Number: DE-CELGENE-DEU-20211200912

PATIENT
  Age: 80 Year
  Sex: Male
  Weight: 100 kg

DRUGS (6)
  1. DEXAMETHASONE [Suspect]
     Active Substance: DEXAMETHASONE
     Indication: Product used for unknown indication
     Dosage: UNIT DOSE : 12MG
     Route: 065
     Dates: start: 20151203
  2. DEXAMETHASONE [Suspect]
     Active Substance: DEXAMETHASONE
     Dosage: UNIT DOSE : 12MG
     Route: 065
     Dates: start: 20151126
  3. DEXAMETHASONE [Suspect]
     Active Substance: DEXAMETHASONE
     Dosage: UNIT DOSE : 12 MG
     Route: 065
     Dates: start: 20151210
  4. DEXAMETHASONE [Suspect]
     Active Substance: DEXAMETHASONE
     Dosage: UNIT DOSE : 12MG
     Route: 065
     Dates: start: 20151119
  5. POMALIDOMIDE [Suspect]
     Active Substance: POMALIDOMIDE
     Indication: Relapsing-remitting multiple sclerosis
     Dosage: UNIT DOSE : 3MG, DURATION : 20 DAYS
     Route: 048
     Dates: start: 20151125, end: 20151215
  6. POMALIDOMIDE [Suspect]
     Active Substance: POMALIDOMIDE
     Dosage: UNIT DOSE : 3MG, DURATION : 20 DAYS
     Route: 048
     Dates: start: 20171118, end: 20171208

REACTIONS (1)
  - Acute kidney injury [Not Recovered/Not Resolved]

NARRATIVE: CASE EVENT DATE: 20171209
